FAERS Safety Report 21979741 (Version 1)
Quarter: 2023Q1

REPORT INFORMATION
  Report Type: Spontaneous
  Country: BE (occurrence: BE)
  Receive Date: 20230210
  Receipt Date: 20230210
  Transmission Date: 20230417
  Serious: Yes (Other)
  Sender: FDA-Public Use
  Company Number: BE-HALEON-BECH2023GSK006343

PATIENT

DRUGS (1)
  1. NIQUITIN [Suspect]
     Active Substance: NICOTINE
     Indication: Product used for unknown indication
     Dosage: UNK
     Dates: start: 202210

REACTIONS (2)
  - Conjunctival haemorrhage [Unknown]
  - Inappropriate schedule of product administration [Unknown]
